FAERS Safety Report 10162289 (Version 1)
Quarter: 2014Q2

REPORT INFORMATION
  Report Type: Spontaneous
  Country: US (occurrence: None)
  Receive Date: 20140507
  Receipt Date: 20140507
  Transmission Date: 20141212
  Serious: Yes (Hospitalization)
  Sender: FDA-Public Use
  Company Number: B0990852A

PATIENT
  Age: 24 Month
  Sex: Female

DRUGS (1)
  1. ONDANSETRON HYDROCHLORIDE [Suspect]
     Indication: PRODUCT USED FOR UNKNOWN INDICATION
     Dosage: UNK, ORAL
     Route: 048

REACTIONS (16)
  - Nystagmus [None]
  - Somnolence [None]
  - Gait disturbance [None]
  - Vomiting [None]
  - Depressed level of consciousness [None]
  - Blood pressure decreased [None]
  - Sinus tachycardia [None]
  - Electrocardiogram QT prolonged [None]
  - Myoclonus [None]
  - Pupils unequal [None]
  - Toxicity to various agents [None]
  - Hypotension [None]
  - Respiratory failure [None]
  - Overdose [None]
  - Accidental exposure to product by child [None]
  - Failure of child resistant mechanism for pharmaceutical product [None]
